FAERS Safety Report 9752645 (Version 2)
Quarter: 2013Q4

REPORT INFORMATION
  Report Type: Spontaneous
  Country: JP (occurrence: JP)
  Receive Date: 20131213
  Receipt Date: 20131213
  Transmission Date: 20140711
  Serious: Yes (Other)
  Sender: FDA-Public Use
  Company Number: JP-NOVOPROD-393463

PATIENT
  Age: 72 Year
  Sex: Female

DRUGS (1)
  1. VICTOZA HIKACHU INJECTION [Suspect]
     Indication: TYPE 2 DIABETES MELLITUS
     Dosage: UNK
     Route: 058
     Dates: start: 20130927

REACTIONS (3)
  - Angina pectoris [Unknown]
  - Yawning [Unknown]
  - Palpitations [Unknown]
